FAERS Safety Report 7865989-7 (Version None)
Quarter: 2011Q4

REPORT INFORMATION
  Report Type: 
  Country: None (occurrence: None)
  Receive Date: 20111028
  Receipt Date: 20110404
  Transmission Date: 20120403
  Serious: No
  Sender: FDA-Public Use
  Company Number: US-GLAXOSMITHKLINE-A0921296A

PATIENT
  Age: 73 Year
  Sex: Male

DRUGS (11)
  1. ADVAIR DISKUS 100/50 [Suspect]
     Indication: DYSPNOEA
     Dosage: 1PUFF TWICE PER DAY
     Route: 055
     Dates: start: 20101201
  2. UNSPECIFIED MEDICATION [Concomitant]
  3. COZAAR [Concomitant]
  4. ALBUTEROL [Concomitant]
  5. FUROSEMIDE [Concomitant]
  6. GABAPENTIN [Concomitant]
  7. SIMVASTATIN [Concomitant]
  8. CARVEDILOL [Concomitant]
  9. COUMADIN [Concomitant]
  10. FLOMAX [Concomitant]
  11. TIKOSYN [Concomitant]

REACTIONS (5)
  - GINGIVAL SWELLING [None]
  - GINGIVAL PAIN [None]
  - STOMATITIS [None]
  - ORAL INFECTION [None]
  - OEDEMA MOUTH [None]
